FAERS Safety Report 6015465-1 (Version None)
Quarter: 2008Q4

REPORT INFORMATION
  Report Type: 
  Country: None (occurrence: None)
  Receive Date: 20081222
  Receipt Date: 20081217
  Transmission Date: 20090506
  Serious: Yes (Death, Hospitalization)
  Sender: FDA-Public Use
  Company Number: PHHY2008US28178

PATIENT
  Sex: Female
  Weight: 49.433 kg

DRUGS (5)
  1. TASIGNA [Suspect]
     Indication: ACUTE LYMPHOCYTIC LEUKAEMIA
     Dosage: 400 MG, BID
     Route: 048
     Dates: start: 20080101, end: 20081107
  2. ACTONEL [Concomitant]
     Dosage: WEEKLY
     Route: 048
  3. ACETYLSALICYLIC ACID [Concomitant]
     Dosage: 81 MG
     Route: 048
  4. CALCIUM [Concomitant]
     Route: 048
  5. FOLIC ACID [Concomitant]

REACTIONS (23)
  - ANXIETY [None]
  - ASTHENIA [None]
  - ATELECTASIS [None]
  - BACK PAIN [None]
  - CACHEXIA [None]
  - CARDIOMEGALY [None]
  - DECREASED APPETITE [None]
  - DISCOMFORT [None]
  - DYSPNOEA [None]
  - GASTRIC HAEMORRHAGE [None]
  - GENERAL PHYSICAL HEALTH DETERIORATION [None]
  - HAEMATEMESIS [None]
  - HAEMOGLOBIN DECREASED [None]
  - HYPOTENSION [None]
  - HYPOXIA [None]
  - MALAISE [None]
  - NAUSEA [None]
  - OXYGEN SATURATION DECREASED [None]
  - PAIN IN EXTREMITY [None]
  - PANCYTOPENIA [None]
  - PLATELET COUNT DECREASED [None]
  - TACHYCARDIA [None]
  - VOMITING [None]
